FAERS Safety Report 10249347 (Version 1)
Quarter: 2014Q2

REPORT INFORMATION
  Report Type: Spontaneous
  Country: US (occurrence: None)
  Receive Date: 20140619
  Receipt Date: 20140619
  Transmission Date: 20141212
  Serious: Yes (Other)
  Sender: FDA-Public Use
  Company Number: None

PATIENT
  Age: 54 Year
  Sex: Female

DRUGS (1)
  1. VICKS VAPORUB [Suspect]
     Dates: start: 20140515, end: 20140521

REACTIONS (7)
  - Cough [None]
  - Back pain [None]
  - Cold sweat [None]
  - Application site erythema [None]
  - Pharyngeal erythema [None]
  - Drug hypersensitivity [None]
  - Chest X-ray abnormal [None]
